FAERS Safety Report 7891965-4 (Version None)
Quarter: 2011Q4

REPORT INFORMATION
  Report Type: 
  Country: None (occurrence: None)
  Receive Date: 20111103
  Receipt Date: 20110812
  Transmission Date: 20120403
  Serious: No
  Sender: FDA-Public Use
  Company Number: US-AMGEN-USASP2011041161

PATIENT
  Age: 54 Year
  Sex: Male
  Weight: 74.83 kg

DRUGS (6)
  1. MELOXICAM [Concomitant]
     Dosage: 7.5 MG, UNK
     Route: 048
  2. ORACEA [Concomitant]
     Dosage: 40 MG, UNK
     Route: 048
  3. ENBREL [Suspect]
     Indication: PRODUCT USED FOR UNKNOWN INDICATION
     Dosage: 50 MG, 2 TIMES/WK
     Route: 058
  4. PROMETHAZINE                       /00033002/ [Concomitant]
     Route: 048
  5. CELEBREX [Concomitant]
  6. LISINOPRIL [Concomitant]
     Dosage: 2.5 MG, UNK
     Route: 048

REACTIONS (2)
  - CONTUSION [None]
  - WEIGHT DECREASED [None]
